FAERS Safety Report 8290354-0 (Version None)
Quarter: 2012Q2

REPORT INFORMATION
  Report Type: 
  Country: None (occurrence: None)
  Receive Date: 20120417
  Receipt Date: 20120404
  Transmission Date: 20120825
  Serious: Yes (Other)
  Sender: FDA-Public Use
  Company Number: JP-ELI_LILLY_AND_COMPANY-JP201203004040

PATIENT
  Sex: Female

DRUGS (5)
  1. CABERGOLINE [Concomitant]
     Indication: GALACTORRHOEA
     Dosage: UNK
     Route: 048
     Dates: start: 20120308, end: 20120309
  2. ZYPREXA [Suspect]
     Dosage: 5 MG, QD
     Route: 048
     Dates: start: 20110804
  3. COBAMAMIDE [Concomitant]
     Indication: SCHIZOPHRENIA
     Dosage: UNK
     Route: 048
  4. ZYPREXA [Suspect]
     Indication: SCHIZOPHRENIA
     Dosage: 10 MG, QD
     Route: 048
     Dates: end: 20110803
  5. FEROTYM [Concomitant]
     Indication: SCHIZOPHRENIA
     Dosage: UNK
     Route: 048

REACTIONS (2)
  - BREAST DISCOMFORT [None]
  - MATERNAL EXPOSURE DURING PREGNANCY [None]
